FAERS Safety Report 4430046-9 (Version None)
Quarter: 2004Q3

REPORT INFORMATION
  Report Type: 
  Country: None (occurrence: None)
  Receive Date: 20040817
  Receipt Date: 20040804
  Transmission Date: 20050211
  Serious: Yes (Death, Hospitalization, Other)
  Sender: FDA-Public Use
  Company Number: 2014517

PATIENT
  Age: 53 Year
  Sex: Female
  Weight: 63.5 kg

DRUGS (57)
  1. OXYCONTIN [Suspect]
     Indication: PAIN
     Dosage: 80 MG, SEE TEXT; ORAL (SEE IMAGE)
     Route: 048
     Dates: start: 19980101, end: 20010506
  2. OXYCONTIN [Suspect]
     Indication: PAIN
     Dosage: 80 MG, SEE TEXT; ORAL (SEE IMAGE)
     Route: 048
     Dates: start: 19970701
  3. OXYCONTIN [Suspect]
     Indication: PAIN
     Dosage: 80 MG, SEE TEXT; ORAL (SEE IMAGE)
     Route: 048
     Dates: start: 19970910
  4. OXYCONTIN [Suspect]
     Indication: PAIN
     Dosage: 80 MG, SEE TEXT; ORAL (SEE IMAGE)
     Route: 048
     Dates: start: 19980806
  5. OXYCONTIN [Suspect]
     Indication: PAIN
     Dosage: 80 MG, SEE TEXT; ORAL (SEE IMAGE)
     Route: 048
     Dates: start: 19981208
  6. OXYCONTIN [Suspect]
     Indication: PAIN
     Dosage: 80 MG, SEE TEXT; ORAL (SEE IMAGE)
     Route: 048
     Dates: start: 19990202
  7. OXYCONTIN [Suspect]
     Indication: PAIN
     Dosage: 80 MG, SEE TEXT; ORAL (SEE IMAGE)
     Route: 048
     Dates: start: 20000313
  8. LORCET-HD [Suspect]
     Indication: PAIN
     Dosage: ORAL
     Route: 048
     Dates: end: 20010506
  9. METHADONE HCL [Suspect]
     Dates: end: 20010506
  10. LIPITOR [Concomitant]
  11. ELAVIL (AITRIPTYLINE HYDROCHLORIDE) [Concomitant]
  12. UNK [Concomitant]
  13. DESYREL [Concomitant]
  14. VERAPAMIL [Concomitant]
  15. ZITHROMAX [Concomitant]
  16. CELESTONE [Concomitant]
  17. TORADOL [Concomitant]
  18. PHENERGAN EXPECTORANT (SULFOGAIACOL, SODIUM CITRATE, PROMETHAZINE HYDR [Concomitant]
  19. PREVACID [Concomitant]
  20. VERELAN (VERAPAMIL HYDROCHLORIDE) [Concomitant]
  21. ESTRATEST [Concomitant]
  22. XANAX [Concomitant]
  23. AMBIEN [Concomitant]
  24. EFFEXOR XR [Concomitant]
  25. CLONIDINE HCL [Concomitant]
  26. SOMA [Concomitant]
  27. HALOTESTIN (FLUOXYMESTERONE) [Concomitant]
  28. CELEXA [Concomitant]
  29. PREDNISONE [Concomitant]
  30. DEXEDRINE ^MEDEVA^ (DEXAMFETAMINE SULFATE) [Concomitant]
  31. PROPROXYPHENE [Concomitant]
  32. LANOXIN [Concomitant]
  33. GLUCOPHAGE [Concomitant]
  34. REGLAN [Concomitant]
  35. NEURONTIN [Concomitant]
  36. ARAVA [Concomitant]
  37. FLAGYL [Concomitant]
  38. BIAXIN [Concomitant]
  39. ISOPTIN [Concomitant]
  40. TICLID [Concomitant]
  41. WELLBUTRIN [Concomitant]
  42. PRANDIN ^KUHN^ (DEFLAZACORT) [Concomitant]
  43. HYDRONET (HYDROCHLOROTHIAZIDE, AMILORIDE) [Concomitant]
  44. CALCIUM [Concomitant]
  45. DHEA (PRASTERONE) [Concomitant]
  46. DEPO-ESTRADIOL, (CHLOROBUTANOL, COTTONSEEDOIL, ESTRADIOL, CIPIONATE) [Concomitant]
  47. ROXICODONE [Concomitant]
  48. PLETAL [Concomitant]
  49. LASIX [Concomitant]
  50. POTASSIUM CHLORIDE [Concomitant]
  51. ATIVAN [Concomitant]
  52. ALBUTEROL [Concomitant]
  53. PEPCID [Concomitant]
  54. CELEBREX [Concomitant]
  55. INSULIN, REGULAR (INSULIN) [Concomitant]
  56. SIMETHICOONE (SIMETICONE) [Concomitant]
  57. OXYIR (OXYCODONE HYDROCHLORIDE) [Concomitant]

REACTIONS (61)
  - ABASIA [None]
  - ACCIDENTAL OVERDOSE [None]
  - ANDROGEN DEFICIENCY [None]
  - ANGIOPLASTY [None]
  - ANKLE FRACTURE [None]
  - ANXIETY [None]
  - ARTERIAL STENOSIS [None]
  - ARTERIOSCLEROSIS [None]
  - ASTHENIA [None]
  - BLOOD OESTROGEN DECREASED [None]
  - BRUXISM [None]
  - BURSITIS [None]
  - CONDITION AGGRAVATED [None]
  - CONFUSIONAL STATE [None]
  - CYANOSIS [None]
  - DEPRESSED LEVEL OF CONSCIOUSNESS [None]
  - DEPRESSION [None]
  - DIABETES MELLITUS [None]
  - DIARRHOEA [None]
  - DISCOMFORT [None]
  - DIZZINESS [None]
  - DRUG ABUSER [None]
  - DRUG DEPENDENCE [None]
  - DRUG INEFFECTIVE [None]
  - DRUG WITHDRAWAL SYNDROME [None]
  - DYSSTASIA [None]
  - EYE IRRITATION [None]
  - FALL [None]
  - FATIGUE [None]
  - FEELING ABNORMAL [None]
  - GAIT DISTURBANCE [None]
  - HEART RATE DECREASED [None]
  - ILEUS PARALYTIC [None]
  - IMPAIRED SELF-CARE [None]
  - INTENTIONAL SELF-INJURY [None]
  - LOWER LIMB FRACTURE [None]
  - MEDICATION ERROR [None]
  - MYOCLONUS [None]
  - NAUSEA [None]
  - NEUROPATHY PERIPHERAL [None]
  - NIPPLE PAIN [None]
  - OPEN FRACTURE [None]
  - PAIN [None]
  - PAIN IN EXTREMITY [None]
  - PALLOR [None]
  - PERIPHERAL ISCHAEMIA [None]
  - PHARYNGOLARYNGEAL PAIN [None]
  - PNEUMONIA BACTERIAL [None]
  - RESUSCITATION [None]
  - RHEUMATOID ARTHRITIS [None]
  - ROAD TRAFFIC ACCIDENT [None]
  - SLEEP DISORDER [None]
  - SOMNOLENCE [None]
  - SUICIDE ATTEMPT [None]
  - TACHYCARDIA [None]
  - THEFT [None]
  - THROMBOLYSIS [None]
  - TIBIA FRACTURE [None]
  - UPPER RESPIRATORY TRACT INFECTION [None]
  - VOMITING [None]
  - WEIGHT INCREASED [None]
